FAERS Safety Report 5070942-5 (Version None)
Quarter: 2006Q3

REPORT INFORMATION
  Report Type: 
  Country: None (occurrence: None)
  Receive Date: 20060801
  Receipt Date: 20060801
  Transmission Date: 20061208
  Serious: Yes (Hospitalization)
  Sender: FDA-Public Use
  Company Number: None

PATIENT
  Age: 83 Year
  Sex: Female
  Weight: 80.2867 kg

DRUGS (1)
  1. WARFARIN SODIUM [Suspect]
     Indication: ATRIAL FIBRILLATION
     Dosage: 5 MG QHS PO
     Route: 048
     Dates: end: 20060724

REACTIONS (5)
  - FALL [None]
  - HAEMORRHAGE INTRACRANIAL [None]
  - HEAD INJURY [None]
  - INTERNATIONAL NORMALISED RATIO INCREASED [None]
  - SPEECH DISORDER [None]
